FAERS Safety Report 14968095 (Version 1)
Quarter: 2018Q2

REPORT INFORMATION
  Report Type: Spontaneous
  Country: AT (occurrence: AT)
  Receive Date: 20180604
  Receipt Date: 20180604
  Transmission Date: 20180711
  Serious: Yes (Hospitalization, Other)
  Sender: FDA-Public Use
  Company Number: AT-ACCORD-067584

PATIENT
  Age: 17 Year
  Sex: Female

DRUGS (8)
  1. DEPAKINE [Interacting]
     Active Substance: VALPROATE SODIUM
     Indication: PRODUCT USED FOR UNKNOWN INDICATION
     Dosage: 1000 MG, QD
     Dates: start: 20151108
  2. LEVOMEPROMAZINE [Interacting]
     Active Substance: LEVOMEPROMAZINE
     Indication: PRODUCT USED FOR UNKNOWN INDICATION
     Dosage: 150 MG, UNK
     Route: 048
     Dates: start: 20151107, end: 20151107
  3. QUETIAPINE. [Suspect]
     Active Substance: QUETIAPINE
     Indication: TIC
     Route: 048
     Dates: start: 20151109
  4. SEROQUEL [Interacting]
     Active Substance: QUETIAPINE FUMARATE
     Indication: TIC
     Dosage: 700 MG, UNK
     Route: 048
     Dates: start: 20151109
  5. NOZINAN [Interacting]
     Active Substance: LEVOMEPROMAZINE
     Indication: PRODUCT USED FOR UNKNOWN INDICATION
     Dosage: 50 MG, UNK
     Route: 048
     Dates: start: 20151106, end: 20151106
  6. TEMESTA EXPIDET [Interacting]
     Active Substance: LORAZEPAM
     Indication: PRODUCT USED FOR UNKNOWN INDICATION
     Dosage: 2.5 MG, UNK
     Route: 042
     Dates: start: 201107, end: 20151107
  7. ABILIFY [Interacting]
     Active Substance: ARIPIPRAZOLE
     Indication: PERSONALITY DISORDER
     Dosage: 15 MG, UNK
     Route: 048
     Dates: start: 20151105, end: 20151108
  8. LORAZEPAM. [Interacting]
     Active Substance: LORAZEPAM
     Indication: PRODUCT USED FOR UNKNOWN INDICATION
     Dosage: 2.5 MG, UNK
     Dates: start: 201107, end: 20151107

REACTIONS (3)
  - Drug interaction [Unknown]
  - Off label use [Unknown]
  - Urinary retention [Recovered/Resolved]

NARRATIVE: CASE EVENT DATE: 20151108
